FAERS Safety Report 6709908 (Version 2)
Quarter: 2013Q1

REPORT INFORMATION
  Report Type: Spontaneous
  Country: DE (occurrence: None)
  Receive Date: 20080715
  Receipt Date: 20130114
  Transmission Date: 20140127
  Serious: Yes (Other)
  Sender: FDA-Public Use
  Company Number: 2008AP001652

PATIENT
  Age: 3 Year
  Sex: Male

DRUGS (9)
  1. CARBAMAZEPINE [Suspect]
     Indication: AFFECTIVE DISORDER
  2. VALPROATE SODIUM [Suspect]
     Indication: AFFECTIVE DISORDER
  3. VALPROIC ACID [Suspect]
     Indication: AFFECTIVE DISORDER
  4. GUANFACINE [Concomitant]
  5. LITHIUM CITRATE [Concomitant]
  6. METHYLPHENIDATE [Concomitant]
  7. FLUOXETINE HYDROCHLORIDE [Concomitant]
  8. BUSPIRONE [Concomitant]
  9. THIORIDAZINE [Concomitant]

REACTIONS (2)
  - Bone marrow failure [None]
  - Weight increased [None]
